FAERS Safety Report 7243342-7 (Version None)
Quarter: 2011Q1

REPORT INFORMATION
  Report Type: 
  Country: None (occurrence: None)
  Receive Date: 20110118
  Receipt Date: 20110107
  Transmission Date: 20110831
  Serious: Yes (Other)
  Sender: FDA-Public Use
  Company Number: 2011SP001002

PATIENT
  Age: 32 Year
  Sex: Female

DRUGS (6)
  1. SAPHRIS [Suspect]
     Indication: PRODUCT USED FOR UNKNOWN INDICATION
     Dosage: PO
     Route: 048
     Dates: start: 20100101
  2. GEODON [Suspect]
     Indication: PSYCHOTIC DISORDER
  3. RISPERDAL [Suspect]
     Indication: PSYCHOTIC DISORDER
  4. ZYPREXA [Suspect]
     Indication: PSYCHOTIC DISORDER
  5. PERPHENAZINE [Concomitant]
  6. LAMICTAL [Concomitant]

REACTIONS (3)
  - DIABETES MELLITUS [None]
  - WEIGHT INCREASED [None]
  - CHEST DISCOMFORT [None]
